FAERS Safety Report 15904238 (Version 4)
Quarter: 2019Q3

REPORT INFORMATION
  Report Type: Report from Study
  Country: IT (occurrence: IT)
  Receive Date: 20190204
  Receipt Date: 20190730
  Transmission Date: 20191004
  Serious: Yes (Other)
  Sender: FDA-Public Use
  Company Number: IT-ROCHE-2138116

PATIENT
  Age: 49 Year
  Sex: Male

DRUGS (9)
  1. TARGIN [Concomitant]
     Active Substance: NALOXONE HYDROCHLORIDE\OXYCODONE HYDROCHLORIDE
     Indication: PAIN
     Dosage: DOSE-2CP; FOR YEARS; ONGOGING, 5/2.5
     Route: 048
  2. PREGABALIN. [Concomitant]
     Active Substance: PREGABALIN
     Indication: PAIN
     Dosage: FOR YEARS; ONGOGING;DOSE- 4CP
     Route: 048
  3. CLONAZEPAM. [Concomitant]
     Active Substance: CLONAZEPAM
     Indication: INSOMNIA
     Dosage: 1CP; FOR YEARS; ONGOING; ORAL
     Route: 065
  4. BACLOFENE [Concomitant]
     Active Substance: BACLOFEN
     Indication: MUSCULOSKELETAL STIFFNESS
     Dosage: DOSE-3CP; FOR YEARS; ONGOGING;
     Route: 048
  5. NEBIVOLOLO [Concomitant]
     Active Substance: NEBIVOLOL
     Indication: HYPERTENSION
     Dosage: 1CP; FOR YEARS; ONGOGING;
     Route: 048
  6. DOMPERIDONE [Concomitant]
     Active Substance: DOMPERIDONE
     Indication: CONSTIPATION
     Dosage: DOSE-3CP; FOR YEARS; ONGOGING;
     Route: 048
  7. ESOMEPRAZOLO [Concomitant]
     Active Substance: ESOMEPRAZOLE
     Indication: GASTROINTESTINAL DISORDER PROPHYLAXIS
     Dosage: 1CP; FOR YEARS; ONGOING;
     Route: 048
  8. OCRELIZUMAB. [Suspect]
     Active Substance: OCRELIZUMAB
     Indication: PRIMARY PROGRESSIVE MULTIPLE SCLEROSIS
     Dosage: 600 MG
     Route: 042
     Dates: start: 20180223
  9. LEVOTIROXIN [Concomitant]
     Active Substance: LEVOTHYROXINE SODIUM
     Indication: HYPOTHYROIDISM
     Dosage: DOSE-1CP; FOR YEARS; ONGOGING;
     Route: 048

REACTIONS (5)
  - Pyrexia [Not Recovered/Not Resolved]
  - Decubitus ulcer [Recovering/Resolving]
  - Phlebitis [Recovered/Resolved]
  - Superinfection [Not Recovered/Not Resolved]
  - Erythema [Recovering/Resolving]

NARRATIVE: CASE EVENT DATE: 20190122
